FAERS Safety Report 7178508-8 (Version None)
Quarter: 2010Q4

REPORT INFORMATION
  Report Type: 
  Country: None (occurrence: None)
  Receive Date: 20101220
  Receipt Date: 20101210
  Transmission Date: 20110411
  Serious: Yes (Hospitalization)
  Sender: FDA-Public Use
  Company Number: IN-BRISTOL-MYERS SQUIBB COMPANY-15424591

PATIENT
  Age: 8 Year
  Sex: Male

DRUGS (5)
  1. ETOPOSIDE [Suspect]
     Indication: NON-HODGKIN'S LYMPHOMA
  2. IFOSFAMIDE [Suspect]
     Indication: NON-HODGKIN'S LYMPHOMA
  3. VINCRISTINE [Suspect]
     Indication: NON-HODGKIN'S LYMPHOMA
  4. CYTARABINE [Suspect]
     Indication: NON-HODGKIN'S LYMPHOMA
  5. DEXAMETHASONE [Suspect]
     Indication: NON-HODGKIN'S LYMPHOMA

REACTIONS (4)
  - FEBRILE NEUTROPENIA [None]
  - GUILLAIN-BARRE SYNDROME [None]
  - NEUROTOXICITY [None]
  - PNEUMONIA [None]
